FAERS Safety Report 10340577 (Version 1)
Quarter: 2014Q3

REPORT INFORMATION
  Report Type: Spontaneous
  Country: JP (occurrence: JP)
  Receive Date: 20140724
  Receipt Date: 20140724
  Transmission Date: 20150326
  Serious: Yes (Hospitalization, Congenital Anomaly)
  Sender: FDA-Public Use
  Company Number: JP-VIIV HEALTHCARE LIMITED-B1016575A

PATIENT
  Sex: Male
  Weight: 2.28 kg

DRUGS (40)
  1. LAC-B [Concomitant]
     Active Substance: BIFIDOBACTERIUM SPP.
     Route: 064
     Dates: start: 20140430, end: 20140506
  2. MORPHINE HYDROCHLORIDE [Concomitant]
     Active Substance: MORPHINE HYDROCHLORIDE
     Indication: CAESAREAN SECTION
     Route: 064
     Dates: start: 20140609, end: 20140609
  3. CEFAZOLIN SODIUM. [Concomitant]
     Active Substance: CEFAZOLIN SODIUM
     Indication: CAESAREAN SECTION
     Route: 064
     Dates: start: 20140609, end: 20140610
  4. NOVO HEPARIN [Concomitant]
     Active Substance: HEPARIN SODIUM
     Route: 042
     Dates: start: 20140609, end: 20140617
  5. RAVONAL [Concomitant]
     Active Substance: THIOPENTAL
     Indication: ANAESTHESIA PROCEDURE
     Route: 042
     Dates: start: 20140612, end: 20140612
  6. PRIMPERAN [Concomitant]
     Active Substance: METOCLOPRAMIDE HYDROCHLORIDE
     Route: 064
     Dates: start: 20121221, end: 20131027
  7. CALONAL [Concomitant]
     Active Substance: ACETAMINOPHEN
     Route: 064
     Dates: start: 20140428, end: 20140506
  8. EPHEDRIN [Concomitant]
     Active Substance: EPHEDRINE HYDROCHLORIDE
     Indication: CAESAREAN SECTION
     Route: 064
     Dates: start: 20140609, end: 20140609
  9. BICARBONATE [Concomitant]
     Active Substance: BICARBONATE ION
     Indication: CAESAREAN SECTION
     Route: 064
     Dates: start: 20140609, end: 20140609
  10. ZIDOVUDINE. [Concomitant]
     Active Substance: ZIDOVUDINE
     Indication: CAESAREAN SECTION
     Route: 064
     Dates: start: 20140609, end: 20140609
  11. CEFDINIR. [Concomitant]
     Active Substance: CEFDINIR
     Route: 048
     Dates: start: 20140625
  12. EDURANT [Concomitant]
     Active Substance: RILPIVIRINE HYDROCHLORIDE
     Route: 064
     Dates: start: 20121221, end: 20131027
  13. KAYTWO N [Concomitant]
     Active Substance: UNSPECIFIED INGREDIENT
     Route: 042
     Dates: start: 20140616, end: 20140616
  14. CALCICOL [Concomitant]
     Active Substance: CALCIUM GLUCONATE
     Route: 042
     Dates: start: 20140609, end: 20140617
  15. ZIDOVUDINE. [Concomitant]
     Active Substance: ZIDOVUDINE
     Route: 048
     Dates: start: 20140617, end: 20140710
  16. EPZICOM [Suspect]
     Active Substance: ABACAVIR SULFATE\LAMIVUDINE
     Indication: HIV INFECTION
     Dosage: 1IUAX PER DAY
     Route: 064
     Dates: start: 20100827
  17. LUTEONIN [Concomitant]
     Route: 064
     Dates: start: 20140524
  18. PROCHLORPERAZINE. [Concomitant]
     Active Substance: PROCHLORPERAZINE
     Indication: CAESAREAN SECTION
     Route: 064
     Dates: start: 20140609, end: 20140609
  19. XYLOCAINE [Concomitant]
     Active Substance: LIDOCAINE HYDROCHLORIDE
     Indication: CAESAREAN SECTION
     Route: 064
     Dates: start: 20140609, end: 20140609
  20. RETROVIR [Concomitant]
     Active Substance: ZIDOVUDINE
     Route: 042
     Dates: start: 20140609, end: 20140616
  21. SUGAMMADEX [Concomitant]
     Active Substance: SUGAMMADEX
     Indication: SURGERY
     Route: 042
     Dates: start: 20140612, end: 20140612
  22. KALETRA [Concomitant]
     Active Substance: LOPINAVIR\RITONAVIR
     Indication: HIV INFECTION
     Dosage: 2IUAX TWICE PER DAY
     Route: 064
     Dates: start: 20131129
  23. ISENTRESS [Concomitant]
     Active Substance: RALTEGRAVIR POTASSIUM
     Route: 064
     Dates: start: 20131028, end: 20131128
  24. TIQUIZIUM BROMIDE [Concomitant]
     Active Substance: TIQUIZIUM BROMIDE
     Route: 064
     Dates: start: 20140430, end: 20140506
  25. PHYSIO 140 [Concomitant]
     Indication: CAESAREAN SECTION
     Route: 064
     Dates: start: 20140609, end: 20140609
  26. UNKNOWN DRUG [Concomitant]
     Active Substance: UNSPECIFIED INGREDIENT
     Indication: PAIN PROPHYLAXIS
     Route: 042
     Dates: start: 20140613, end: 20140614
  27. ATONIN O [Concomitant]
     Active Substance: OXYTOCIN
     Indication: CAESAREAN SECTION
     Route: 064
     Dates: start: 20140609, end: 20140609
  28. ANAPEINE [Concomitant]
     Active Substance: ROPIVACAINE HYDROCHLORIDE
     Indication: CAESAREAN SECTION
     Route: 064
     Dates: start: 20140609, end: 20140609
  29. MARCAIN [Concomitant]
     Active Substance: BUPIVACAINE HYDROCHLORIDE
     Indication: CAESAREAN SECTION
     Route: 064
     Dates: start: 20140609, end: 20140609
  30. EPOETIN ALFA [Concomitant]
     Active Substance: ERYTHROPOIETIN
     Route: 058
     Dates: start: 20140620, end: 20140620
  31. ESLAX [Concomitant]
     Active Substance: ROCURONIUM BROMIDE
     Indication: SURGERY
     Route: 042
     Dates: start: 20140612, end: 20140612
  32. CEFDINIR. [Concomitant]
     Active Substance: CEFDINIR
     Route: 064
     Dates: start: 20140214, end: 20140217
  33. CALONAL [Concomitant]
     Active Substance: ACETAMINOPHEN
     Route: 064
     Dates: start: 20140214
  34. PL [Concomitant]
     Active Substance: ACETAMINOPHEN\CAFFEINE\PROMETHAZINE\SALICYLAMIDE
     Route: 064
     Dates: start: 20140303, end: 20140310
  35. CRAVIT [Concomitant]
     Active Substance: LEVOFLOXACIN
     Route: 064
     Dates: start: 20140428, end: 20140430
  36. HEPARIN CALCIUM [Concomitant]
     Active Substance: HEPARIN CALCIUM
     Indication: CAESAREAN SECTION
     Route: 064
     Dates: start: 20140609, end: 20140610
  37. CEFMETAZOLE SODIUM [Concomitant]
     Active Substance: CEFMETAZOLE SODIUM
     Indication: INFECTION PROPHYLAXIS
     Route: 042
     Dates: start: 20140612, end: 20140620
  38. SEVOFLURANE. [Concomitant]
     Active Substance: SEVOFLURANE
     Indication: ANAESTHESIA PROCEDURE
     Route: 055
     Dates: start: 20140612, end: 20140612
  39. KAYTWO N [Concomitant]
     Active Substance: UNSPECIFIED INGREDIENT
     Route: 042
     Dates: start: 20140609, end: 20140609
  40. INCREMIN [Concomitant]
     Indication: IRON DEFICIENCY ANAEMIA
     Route: 048
     Dates: start: 20140618

REACTIONS (8)
  - Anal atresia [Unknown]
  - Low birth weight baby [Unknown]
  - Cryptorchism [Unknown]
  - Foetal exposure during pregnancy [Unknown]
  - Hydronephrosis [Unknown]
  - Renal aplasia [Unknown]
  - VACTERL syndrome [Unknown]
  - Congenital musculoskeletal anomaly [Unknown]
